FAERS Safety Report 7609337-6 (Version None)
Quarter: 2011Q3

REPORT INFORMATION
  Report Type: 
  Country: None (occurrence: None)
  Receive Date: 20110714
  Receipt Date: 20110704
  Transmission Date: 20111222
  Serious: Yes (Hospitalization, Other)
  Sender: FDA-Public Use
  Company Number: PHHY2011DE46550

PATIENT
  Age: 28 Year
  Sex: Female
  Weight: 52 kg

DRUGS (2)
  1. CILEST [Concomitant]
     Indication: CONTRACEPTION
     Dosage: 0.250/0.035 MG DAILY
     Route: 048
     Dates: start: 20110313
  2. VOLTAREN [Suspect]
     Indication: CHONDRITIS
     Dosage: 150 MG, QD
     Route: 048
     Dates: start: 20110525, end: 20110527

REACTIONS (5)
  - SYNCOPE [None]
  - DIZZINESS [None]
  - FALL [None]
  - LOSS OF CONSCIOUSNESS [None]
  - HYPERVENTILATION [None]
